FAERS Safety Report 26006216 (Version 1)
Quarter: 2025Q4

REPORT INFORMATION
  Report Type: Spontaneous
  Country: GB (occurrence: GB)
  Receive Date: 20251106
  Receipt Date: 20251106
  Transmission Date: 20260118
  Serious: Yes (Other)
  Sender: AUROBINDO
  Company Number: GB-BoehringerIngelheim-2025-BI-103133

PATIENT
  Sex: Male
  Weight: 72 kg

DRUGS (11)
  1. NINTEDANIB [Suspect]
     Active Substance: NINTEDANIB
     Indication: Idiopathic pulmonary fibrosis
     Dosage: 150 MILLIGRAM, TWO TIMES A DAY (720 CAPSULE 0)
     Route: 065
  2. ACETYLCYSTEINE [Concomitant]
     Active Substance: ACETYLCYSTEINE
     Indication: Product used for unknown indication
     Dosage: 600 MILLIGRAM, ONCE A DAY (DISSOLVE ONE TABLET IN WATER, 30 TABLET)
     Route: 065
  3. ASPIRIN [Concomitant]
     Active Substance: ASPIRIN
     Indication: Product used for unknown indication
     Dosage: 75 MILLIGRAM, ONCE A DAY (DISSOLVE ONE TABLET IN WATER, 28 TABLET)
     Route: 065
  4. ATORVASTATIN [Concomitant]
     Active Substance: ATORVASTATIN
     Indication: Product used for unknown indication
     Dosage: 40 MILLIGRAM, ONCE A DAY (AT NIGHT, 28 TABLET)
     Route: 065
  5. AZITHROMYCIN [Concomitant]
     Active Substance: AZITHROMYCIN
     Indication: Product used for unknown indication
     Dosage: 250 MILLIGRAM, ONCE A DAY (4 TABLET)
     Route: 065
  6. BECLOMETHASONE\FORMOTEROL [Concomitant]
     Active Substance: BECLOMETHASONE\FORMOTEROL
     Indication: Product used for unknown indication
     Dosage: UNK UNK, TWO TIMES A DAY (BECLOMETASONE 200 MICROGRAMS + FORMOTEROL 6 MICROGRAMS (FOSTAIR) 200 MICRO
     Route: 065
  7. DOCUSATE SODIUM [Concomitant]
     Active Substance: DOCUSATE SODIUM
     Indication: Product used for unknown indication
     Dosage: 100 MILLIGRAM (TAKE ONE CAPSULE TO TWO CAPSULES TWICE A DAY. 60 CAPSULE)
     Route: 065
  8. LANSOPRAZOLE [Concomitant]
     Active Substance: LANSOPRAZOLE
     Indication: Product used for unknown indication
     Dosage: 30 MILLIGRAM, TWO TIMES A DAY (DO NOT CRUSH OR CHEW. 28 CAPSULE 0)
     Route: 065
  9. PREDNISOLONE [Concomitant]
     Active Substance: PREDNISOLONE
     Indication: Product used for unknown indication
     Dosage: 5 MILLIGRAM (TAKE AS DIRECTED ON THE VARIABLE DOSING SHEET PROVIDED 129 TABLET 0)
     Route: 065
  10. RIVAROXABAN [Concomitant]
     Active Substance: RIVAROXABAN
     Indication: Product used for unknown indication
     Dosage: 10 MILLIGRAM, ONCE A DAY
     Route: 065
  11. SILDENAFIL [Concomitant]
     Active Substance: SILDENAFIL
     Indication: Product used for unknown indication
     Dosage: 25 MILLIGRAM, 3 TIMES A DAY (4 TABLET 0)
     Route: 065

REACTIONS (1)
  - Idiopathic pulmonary fibrosis [Unknown]
